FAERS Safety Report 23286664 (Version 1)
Quarter: 2023Q4

REPORT INFORMATION
  Report Type: Spontaneous
  Country: FR (occurrence: FR)
  Receive Date: 20231212
  Receipt Date: 20231212
  Transmission Date: 20240110
  Serious: Yes (Other)
  Sender: FDA-Public Use
  Company Number: FR-AFSSAPS-AN2023001535

PATIENT
  Age: 49 Year
  Sex: Female

DRUGS (7)
  1. CLARITHROMYCIN [Suspect]
     Active Substance: CLARITHROMYCIN
     Indication: Infection
     Dosage: UNK
     Route: 048
     Dates: start: 202211, end: 202211
  2. OXOMEMAZINE [Suspect]
     Active Substance: OXOMEMAZINE
     Indication: Cough
     Dosage: UNK
     Route: 048
     Dates: start: 202211, end: 202211
  3. ACETYLCYSTEINE [Suspect]
     Active Substance: ACETYLCYSTEINE
     Indication: Bronchitis
     Dosage: UNK
     Route: 048
     Dates: start: 202211, end: 202211
  4. HUMEX(CARBOCYSTEINE) [Suspect]
     Active Substance: CARBOCYSTEINE
     Indication: Oropharyngeal pain
     Dosage: UNK
     Route: 048
     Dates: start: 202211, end: 202211
  5. BILASTINE [Suspect]
     Active Substance: BILASTINE
     Indication: Rhinitis allergic
     Dosage: UNK
     Route: 048
     Dates: start: 202211, end: 202211
  6. DOLIPRANE [Concomitant]
     Active Substance: ACETAMINOPHEN
     Indication: Product used for unknown indication
     Dosage: UNK
     Route: 048
     Dates: start: 202211, end: 202211
  7. MOVICOL [Concomitant]
     Active Substance: POLYETHYLENE GLYCOL 3350\POTASSIUM CHLORIDE\SODIUM BICARBONATE\SODIUM CHLORIDE
     Indication: Product used for unknown indication
     Dosage: UNK
     Route: 048
     Dates: start: 202211, end: 202211

REACTIONS (1)
  - Fixed eruption [Recovered/Resolved]

NARRATIVE: CASE EVENT DATE: 20221104
